FAERS Safety Report 7142201-8 (Version None)
Quarter: 2010Q4

REPORT INFORMATION
  Report Type: 
  Country: None (occurrence: None)
  Receive Date: 20101207
  Receipt Date: 20101123
  Transmission Date: 20110411
  Serious: No
  Sender: FDA-Public Use
  Company Number: US-PFIZER INC-2010156787

PATIENT
  Sex: Female
  Weight: 68.027 kg

DRUGS (1)
  1. XALATAN [Suspect]
     Indication: GLAUCOMA
     Dosage: UNK GTT, 1X/DAY
     Route: 047

REACTIONS (2)
  - EXPIRED DRUG ADMINISTERED [None]
  - INCORRECT DOSE ADMINISTERED [None]
